FAERS Safety Report 5008727-8 (Version None)
Quarter: 2006Q2

REPORT INFORMATION
  Report Type: 
  Country: None (occurrence: None)
  Receive Date: 20060523
  Receipt Date: 20060519
  Transmission Date: 20061013
  Serious: Yes (Other)
  Sender: FDA-Public Use
  Company Number: US-GLAXOSMITHKLINE-A0606295A

PATIENT
  Age: 83 Year
  Sex: Female

DRUGS (3)
  1. PHAZYME QUICK DISSOLVE CHEWABLE TABLETS [Suspect]
     Route: 048
     Dates: start: 20050101
  2. QUINAPRIL [Concomitant]
  3. TOPROL-XL [Concomitant]

REACTIONS (1)
  - VISUAL ACUITY REDUCED [None]
